FAERS Safety Report 22628650 (Version 1)
Quarter: 2023Q2

REPORT INFORMATION
  Report Type: Other
  Country: CA (occurrence: None)
  Receive Date: 20230622
  Receipt Date: 20230622
  Transmission Date: 20230722
  Serious: No
  Sender: FDA-Public Use
  Company Number: CA-ROCHE-3373401

PATIENT
  Sex: Male

DRUGS (1)
  1. OCREVUS [Suspect]
     Active Substance: OCRELIZUMAB
     Indication: Relapsing-remitting multiple sclerosis
     Dosage: 300 MG AT DAY 0 AND 14, THEN 600 MG EVERY 6 MONTH
     Route: 042
     Dates: start: 20200106

REACTIONS (6)
  - Anxiety [Not Recovered/Not Resolved]
  - COVID-19 [Unknown]
  - Ill-defined disorder [Not Recovered/Not Resolved]
  - Insomnia [Recovering/Resolving]
  - Liver disorder [Unknown]
  - Nausea [Unknown]
